FAERS Safety Report 24457787 (Version 1)
Quarter: 2024Q4

REPORT INFORMATION
  Report Type: Report from Study
  Country: US (occurrence: US)
  Receive Date: 20241018
  Receipt Date: 20241018
  Transmission Date: 20250115
  Serious: No
  Sender: ROCHE
  Company Number: US-ROCHE-3420055

PATIENT
  Age: 65 Year
  Sex: Male

DRUGS (4)
  1. CATHFLO ACTIVASE [Suspect]
     Active Substance: ALTEPLASE
     Indication: Pleural effusion
     Dosage: DATE OF SERVICE: 24/AUG/2023 (10 MG), 22/AUG/2023 (20 MG), 23/AUG/2023 (20 MG).
     Route: 065
     Dates: start: 20230821
  2. CATHFLO ACTIVASE [Suspect]
     Active Substance: ALTEPLASE
     Indication: Device related thrombosis
  3. PULMOZYME [Suspect]
     Active Substance: DORNASE ALFA
     Indication: Pleural effusion
     Route: 055
  4. PULMOZYME [Suspect]
     Active Substance: DORNASE ALFA
     Indication: Device related thrombosis

REACTIONS (3)
  - Off label use [Unknown]
  - No adverse event [Unknown]
  - Off label use [Unknown]
